FAERS Safety Report 6014087-6 (Version None)
Quarter: 2008Q4

REPORT INFORMATION
  Report Type: 
  Country: None (occurrence: None)
  Receive Date: 20081219
  Receipt Date: 20071130
  Transmission Date: 20090506
  Serious: No
  Sender: FDA-Public Use
  Company Number: A0696811A

PATIENT
  Age: 47 Year
  Sex: Male

DRUGS (1)
  1. AVODART [Suspect]
     Indication: BENIGN PROSTATIC HYPERPLASIA
     Dosage: 1CAPL PER DAY
     Route: 048
     Dates: start: 20060901, end: 20070901

REACTIONS (6)
  - ANORGASMIA [None]
  - DIZZINESS [None]
  - LOSS OF LIBIDO [None]
  - ORGASM ABNORMAL [None]
  - SEMEN VOLUME DECREASED [None]
  - URETHRAL DISORDER [None]
